FAERS Safety Report 25051638 (Version 1)
Quarter: 2025Q1

REPORT INFORMATION
  Report Type: Spontaneous
  Country: US (occurrence: None)
  Receive Date: 20250307
  Receipt Date: 20250307
  Transmission Date: 20250409
  Serious: Yes (Other)
  Sender: FDA-CTU
  Company Number: None

PATIENT
  Age: 59 Year
  Sex: Female
  Weight: 111 kg

DRUGS (10)
  1. GAMUNEX-C [Suspect]
     Active Substance: HUMAN IMMUNOGLOBULIN G
     Dosage: 5 G RAM(S) TWICE A DAY SUBCUTANEOUS
     Route: 058
  2. ALBUTEROL [Concomitant]
     Active Substance: ALBUTEROL
  3. Advair HFA  230/21 [Concomitant]
  4. FUROSEMIDE [Concomitant]
     Active Substance: FUROSEMIDE
  5. LISINOPRIL [Concomitant]
     Active Substance: LISINOPRIL
  6. MELOXICAM [Concomitant]
     Active Substance: MELOXICAM
  7. MONTELUKAST SODIUM [Concomitant]
     Active Substance: MONTELUKAST SODIUM
  8. ONDANSETRON [Concomitant]
     Active Substance: ONDANSETRON
  9. PANTOPRAZOLE SODIUM [Concomitant]
     Active Substance: PANTOPRAZOLE SODIUM
  10. PREGABALIN [Concomitant]
     Active Substance: PREGABALIN

REACTIONS (6)
  - Chest discomfort [None]
  - Dyspnoea [None]
  - Infusion related reaction [None]
  - Nausea [None]
  - Paraesthesia oral [None]
  - Hypersensitivity [None]

NARRATIVE: CASE EVENT DATE: 20250305
